FAERS Safety Report 7231382-3 (Version None)
Quarter: 2011Q1

REPORT INFORMATION
  Report Type: 
  Country: None (occurrence: None)
  Receive Date: 20110118
  Receipt Date: 20110107
  Transmission Date: 20110831
  Serious: Yes (Death)
  Sender: FDA-Public Use
  Company Number: US-MERCK-1101USA00936

PATIENT
  Age: 86 Year
  Sex: Female

DRUGS (6)
  1. [THERAPY UNSPECIFIED] [Suspect]
     Route: 065
  2. DIURETIC (UNSPECIFIED) [Suspect]
     Route: 065
  3. GLIPIZIDE [Suspect]
     Route: 065
  4. TIAMATE [Suspect]
     Route: 048
  5. CLONIDINE [Suspect]
     Route: 065
  6. METFORMIN [Suspect]
     Route: 065

REACTIONS (2)
  - COMPLETED SUICIDE [None]
  - OVERDOSE [None]
